FAERS Safety Report 17068541 (Version 1)
Quarter: 2019Q4

REPORT INFORMATION
  Report Type: Spontaneous
  Country: DM (occurrence: US)
  Receive Date: 20191123
  Receipt Date: 20191123
  Transmission Date: 20200122
  Serious: No
  Sender: FDA-Public Use
  Company Number: DM-PURDUE-USA-2019-0146630

PATIENT
  Age: 29 Year
  Sex: Male

DRUGS (2)
  1. HYDROCODONE BITARTRATE (SIMILAR TO NDA 206627) [Suspect]
     Active Substance: HYDROCODONE BITARTRATE
     Indication: RESTLESS LEGS SYNDROME
     Route: 048
  2. QUETIAPINE. [Concomitant]
     Active Substance: QUETIAPINE
     Indication: MAJOR DEPRESSION

REACTIONS (1)
  - Off label use [Unknown]
